FAERS Safety Report 19242510 (Version 1)
Quarter: 2021Q2

REPORT INFORMATION
  Report Type: Spontaneous
  Country: US (occurrence: US)
  Receive Date: 20210510
  Receipt Date: 20210510
  Transmission Date: 20210717
  Serious: No
  Sender: FDA-Public Use
  Company Number: US-ANAZAOHEALTH CORPORATION-2110400

PATIENT
  Age: 54 Year
  Sex: Female
  Weight: 80 kg

DRUGS (16)
  1. TESTOSTERONE. [Concomitant]
     Active Substance: TESTOSTERONE
     Route: 058
     Dates: start: 20200730
  2. ESTRADIOL. [Concomitant]
     Active Substance: ESTRADIOL
     Route: 058
     Dates: start: 20190924
  3. TESTOSTERONE. [Concomitant]
     Active Substance: TESTOSTERONE
     Route: 058
     Dates: start: 20201204
  4. ESTRADIOL. [Concomitant]
     Active Substance: ESTRADIOL
     Route: 058
     Dates: start: 20200730
  5. TESTOSTERONE. [Concomitant]
     Active Substance: TESTOSTERONE
     Route: 058
     Dates: start: 20200227
  6. TESTOSTERONE. [Concomitant]
     Active Substance: TESTOSTERONE
     Route: 058
     Dates: start: 20190404
  7. PELLET IMPLANTS ? TESTOSTERONE AND ESTRADIOL [Suspect]
     Active Substance: ESTRADIOL\TESTOSTERONE
     Route: 058
     Dates: start: 20201204
  8. TESTOSTERONE. [Concomitant]
     Active Substance: TESTOSTERONE
     Route: 058
     Dates: start: 20201205
  9. TESTOSTERONE. [Concomitant]
     Active Substance: TESTOSTERONE
     Route: 058
     Dates: start: 20200730
  10. TESTOSTERONE. [Concomitant]
     Active Substance: TESTOSTERONE
     Route: 058
     Dates: start: 20200924
  11. TESTOSTERONE. [Concomitant]
     Active Substance: TESTOSTERONE
     Route: 058
     Dates: start: 20190924
  12. TESTOSTERONE. [Concomitant]
     Active Substance: TESTOSTERONE
     Route: 058
     Dates: start: 20200730
  13. ESTRADIOL. [Concomitant]
     Active Substance: ESTRADIOL
     Route: 058
     Dates: start: 20200227
  14. TESTOSTERONE. [Concomitant]
     Active Substance: TESTOSTERONE
     Route: 058
     Dates: start: 20190924
  15. ESTRADIOL. [Concomitant]
     Active Substance: ESTRADIOL
     Route: 058
     Dates: start: 20201204
  16. ESTRADIOL. [Concomitant]
     Active Substance: ESTRADIOL
     Route: 058
     Dates: start: 20190404

REACTIONS (1)
  - Invasive lobular breast carcinoma [Unknown]

NARRATIVE: CASE EVENT DATE: 20210331
